FAERS Safety Report 24434834 (Version 2)
Quarter: 2024Q4

REPORT INFORMATION
  Report Type: Spontaneous
  Country: US (occurrence: US)
  Receive Date: 20241014
  Receipt Date: 20241028
  Transmission Date: 20250114
  Serious: Yes (Life-Threatening, Hospitalization)
  Sender: TEVA
  Company Number: US-TEVA-VS-3253174

PATIENT
  Age: 38 Year
  Sex: Male

DRUGS (1)
  1. METOPROLOL [Suspect]
     Active Substance: METOPROLOL
     Indication: Product used for unknown indication
     Dosage: EXTENDED-RELEASE; 40 TABLETS
     Route: 048

REACTIONS (4)
  - Hypotension [Recovering/Resolving]
  - Intentional product misuse [Unknown]
  - Shock [Recovering/Resolving]
  - Intentional overdose [Recovering/Resolving]
